FAERS Safety Report 15486299 (Version 2)
Quarter: 2018Q4

REPORT INFORMATION
  Report Type: Report from Study
  Country: None (occurrence: RO)
  Receive Date: 20181011
  Receipt Date: 20181114
  Transmission Date: 20190205
  Serious: Yes (Death, Hospitalization, Other)
  Sender: FDA-Public Use
  Company Number: RO-ABBVIE-18S-135-2515470-00

PATIENT
  Age: 46 Year
  Sex: Female

DRUGS (1)
  1. DUODOPA [Suspect]
     Active Substance: CARBIDOPA\LEVODOPA
     Indication: PARKINSON^S DISEASE
     Dosage: DM=8.50 DC=4.20 ED=1.60
     Route: 050
     Dates: start: 20160408, end: 20181003

REACTIONS (3)
  - Pneumonia [Recovering/Resolving]
  - Cardiopulmonary failure [Recovered/Resolved with Sequelae]
  - Cardio-respiratory arrest [Fatal]

NARRATIVE: CASE EVENT DATE: 20181005
